FAERS Safety Report 16971319 (Version 1)
Quarter: 2019Q4

REPORT INFORMATION
  Report Type: Spontaneous
  Country: FR (occurrence: FR)
  Receive Date: 20191029
  Receipt Date: 20191029
  Transmission Date: 20200122
  Serious: Yes (Hospitalization, Other)
  Sender: FDA-Public Use
  Company Number: FR-PFIZER INC-2019462267

PATIENT
  Age: 83 Year
  Sex: Male

DRUGS (11)
  1. RISORDAN [ISOSORBIDE DINITRATE] [Concomitant]
     Active Substance: ISOSORBIDE DINITRATE
     Dosage: UNK
     Route: 065
  2. ANGIOX [Interacting]
     Active Substance: BIVALIRUDIN
     Dosage: UNK
     Route: 041
     Dates: start: 20170324
  3. ANGIOX [Interacting]
     Active Substance: BIVALIRUDIN
     Indication: ACUTE CORONARY SYNDROME
     Dosage: 1 DF, UNK
     Route: 040
     Dates: start: 20170324, end: 20170324
  4. KRENOSIN [Concomitant]
     Active Substance: ADENOSINE
     Dosage: UNK
     Route: 065
  5. ISOPTINE [Concomitant]
     Active Substance: VERAPAMIL HYDROCHLORIDE
     Dosage: UNK
     Route: 065
  6. NORADRAN [Concomitant]
     Dosage: UNK
     Route: 065
  7. NORADRENALINE [NOREPINEPHRINE] [Concomitant]
     Active Substance: NOREPINEPHRINE
     Dosage: UNK
     Route: 065
  8. SERTRALINE [Suspect]
     Active Substance: SERTRALINE HYDROCHLORIDE
     Indication: DEPRESSION
     Dosage: UNK
     Route: 048
     Dates: end: 20170323
  9. ROGART [Concomitant]
     Dosage: UNK
  10. REOPRO [Suspect]
     Active Substance: ABCIXIMAB
     Indication: ANGIOCARDIOGRAM
     Dosage: ONE SINGLE BOLUS IN ONE DAY
     Route: 042
     Dates: start: 20170324, end: 20170324
  11. KARDEGIC [Interacting]
     Active Substance: ASPIRIN DL-LYSINE
     Dosage: UNK
     Route: 065
     Dates: end: 20170331

REACTIONS (5)
  - Gingival bleeding [Unknown]
  - Mallory-Weiss syndrome [Unknown]
  - Oesophageal ulcer haemorrhage [Recovered/Resolved]
  - Anaemia [Recovered/Resolved]
  - Drug interaction [Unknown]

NARRATIVE: CASE EVENT DATE: 20170324
